FAERS Safety Report 7343413-0 (Version None)
Quarter: 2011Q1

REPORT INFORMATION
  Report Type: 
  Country: None (occurrence: None)
  Receive Date: 20110310
  Receipt Date: 20110225
  Transmission Date: 20110831
  Serious: Yes (Other)
  Sender: FDA-Public Use
  Company Number: PHHY2011US16820

PATIENT
  Sex: Female

DRUGS (1)
  1. TASIGNA [Suspect]
     Indication: CHRONIC MYELOID LEUKAEMIA
     Dosage: 300 MG, BID
     Route: 048
     Dates: start: 20110125

REACTIONS (5)
  - NERVE COMPRESSION [None]
  - DYSPNOEA [None]
  - PAIN [None]
  - RED BLOOD CELL COUNT DECREASED [None]
  - HAEMOGLOBIN DECREASED [None]
